FAERS Safety Report 7099976-6 (Version None)
Quarter: 2010Q4

REPORT INFORMATION
  Report Type: 
  Country: None (occurrence: None)
  Receive Date: 20101112
  Receipt Date: 20101105
  Transmission Date: 20110411
  Serious: Yes (Other)
  Sender: FDA-Public Use
  Company Number: US-BAYER-201040237NA

PATIENT
  Sex: Male

DRUGS (4)
  1. AVELOX [Suspect]
     Indication: SINUSITIS
     Route: 048
     Dates: start: 20050421, end: 20050427
  2. AVELOX [Suspect]
     Route: 048
     Dates: start: 20080103, end: 20080109
  3. KLONOPIN [Concomitant]
  4. LAMICTAL [Concomitant]

REACTIONS (4)
  - BACK INJURY [None]
  - LIMB INJURY [None]
  - MENISCUS LESION [None]
  - ROTATOR CUFF SYNDROME [None]
